FAERS Safety Report 8352029-9 (Version None)
Quarter: 2012Q2

REPORT INFORMATION
  Report Type: 
  Country: None (occurrence: None)
  Receive Date: 20120510
  Receipt Date: 20120510
  Transmission Date: 20120825
  Serious: Yes (Hospitalization)
  Sender: FDA-Public Use
  Company Number: None

PATIENT
  Age: 81 Year
  Sex: Male
  Weight: 56.7 kg

DRUGS (2)
  1. INSULIN [Suspect]
     Indication: DIABETES MELLITUS
     Dosage: 15 UNITS AT BEDTIME SQ
     Route: 058
     Dates: start: 20110928
  2. INSULIN [Concomitant]
     Indication: DIABETES MELLITUS
     Dosage: 12 UNITS UD SQ
     Route: 058
     Dates: start: 20110928

REACTIONS (2)
  - HYPOGLYCAEMIA [None]
  - CONFUSIONAL STATE [None]
